FAERS Safety Report 9614559 (Version 2)
Quarter: 2013Q4

REPORT INFORMATION
  Report Type: Spontaneous
  Country: CA (occurrence: None)
  Receive Date: 20131008
  Receipt Date: 20131219
  Transmission Date: 20140711
  Serious: Yes (Hospitalization)
  Sender: FDA-Public Use
  Company Number: IMP_06835_2013

PATIENT
  Age: 29 Year
  Sex: Female

DRUGS (9)
  1. BUPROPION [Suspect]
     Indication: PRODUCT USED FOR UNKNOWN INDICATION
     Dosage: 1200 MG (DAILY 4 X 300MG) DISSOLVED IN WATER AND INJECTED EVERY 2 TO 3 HRS) INTRAVENOUS (NOT SPEC.)
     Route: 042
  2. RITONAVIR [Concomitant]
  3. ATAZANAVIR [Concomitant]
  4. EMTRICITABINE W/TENOFOVIR [Concomitant]
  5. OLANZAPINE [Concomitant]
  6. LITHIUM [Concomitant]
  7. VENLAFAXINE [Concomitant]
  8. DIVALPROEX [Concomitant]
  9. BUPRENORPHINE W/NALOXONE [Concomitant]

REACTIONS (2)
  - Euphoric mood [None]
  - Drug withdrawal syndrome [None]
